FAERS Safety Report 24529745 (Version 4)
Quarter: 2025Q1

REPORT INFORMATION
  Report Type: Spontaneous
  Country: JP (occurrence: JP)
  Receive Date: 20241021
  Receipt Date: 20250115
  Transmission Date: 20250409
  Serious: Yes (Other)
  Sender: BAYER HEALTHCARE PHARMACEUTICALS INC.
  Company Number: JP-BAYER-2024A143752

PATIENT
  Age: 6 Decade
  Sex: Female

DRUGS (3)
  1. VITRAKVI [Suspect]
     Active Substance: LAROTRECTINIB
     Indication: NTRK gene fusion positive
     Dosage: DAILY DOSE 200 MG
     Dates: start: 20240819
  2. VITRAKVI [Suspect]
     Active Substance: LAROTRECTINIB
     Indication: Follicular thyroid cancer
  3. LENVATINIB [Suspect]
     Active Substance: LENVATINIB
     Indication: Follicular thyroid cancer

REACTIONS (2)
  - Renal impairment [Recovering/Resolving]
  - Oedema peripheral [Not Recovered/Not Resolved]

NARRATIVE: CASE EVENT DATE: 20240101
